FAERS Safety Report 8766581 (Version 1)
Quarter: 2012Q4

REPORT INFORMATION
  Report Type: 
  Country: JP (occurrence: JP)
  Receive Date: 20120831
  Receipt Date: 20120831
  Transmission Date: 20130627
  Serious: Yes (Death)
  Sender: FDA-Public Use
  Company Number: JP-ASTELLAS-2012JP008045

PATIENT
  Age: 70 Year
  Sex: Female

DRUGS (2)
  1. FUNGUARD [Suspect]
     Indication: ANTIFUNGAL TREATMENT
     Route: 041
  2. SULFAMETHOXAZOLE W/TRIMETHOPRIM [Concomitant]
     Route: 065

REACTIONS (2)
  - Cryptococcosis [Fatal]
  - Purpura fulminans [Fatal]
